FAERS Safety Report 21950437 (Version 3)
Quarter: 2023Q1

REPORT INFORMATION
  Report Type: Spontaneous
  Country: US (occurrence: US)
  Receive Date: 20230203
  Receipt Date: 20230322
  Transmission Date: 20230418
  Serious: Yes (Disabling)
  Sender: FDA-Public Use
  Company Number: US-PFIZER INC-202300039919

PATIENT
  Age: 69 Year
  Sex: Female
  Weight: 57.153 kg

DRUGS (5)
  1. ESTRING [Suspect]
     Active Substance: ESTRADIOL
     Indication: Vulvovaginal dryness
     Dosage: UNK, EVERY 3 MONTHS
     Route: 067
     Dates: start: 20221129, end: 202301
  2. ESTRING [Suspect]
     Active Substance: ESTRADIOL
     Indication: Insomnia
  3. ESTRING [Suspect]
     Active Substance: ESTRADIOL
     Indication: Feeling jittery
  4. ESTRING [Suspect]
     Active Substance: ESTRADIOL
     Indication: Uterine prolapse
  5. ESTRING [Suspect]
     Active Substance: ESTRADIOL
     Indication: Vaginal disorder

REACTIONS (1)
  - Drug ineffective [Unknown]

NARRATIVE: CASE EVENT DATE: 20230102
